FAERS Safety Report 4518620-2 (Version None)
Quarter: 2004Q4

REPORT INFORMATION
  Report Type: 
  Country: None (occurrence: None)
  Receive Date: 20041203
  Receipt Date: 20041119
  Transmission Date: 20050328
  Serious: Yes (Hospitalization)
  Sender: FDA-Public Use
  Company Number: PHRM2004FR03405

PATIENT
  Age: 37 Year
  Sex: Female
  Weight: 90 kg

DRUGS (7)
  1. TERCIAN [Suspect]
     Dates: end: 20040722
  2. NOZINAN [Suspect]
     Dates: end: 20040722
  3. IMOVANE [Concomitant]
     Dosage: 7.5 MG, QD
     Route: 048
     Dates: start: 20040803
  4. CLOPIXOL [Concomitant]
  5. LAROXYL [Concomitant]
     Dates: end: 20040722
  6. MAGNE B6 [Concomitant]
     Dates: end: 20040722
  7. LEPONEX [Suspect]
     Indication: SCHIZOPHRENIA
     Dosage: UNK, UNK
     Route: 048
     Dates: start: 20010615, end: 20040805

REACTIONS (14)
  - ASTHENIA [None]
  - BLOOD KETONE BODY INCREASED [None]
  - DIABETES MELLITUS [None]
  - DIABETES MELLITUS NON-INSULIN-DEPENDENT [None]
  - GLYCOSYLATED HAEMOGLOBIN INCREASED [None]
  - HYPERCHOLESTEROLAEMIA [None]
  - HYPERGLYCAEMIA [None]
  - HYPERTHERMIA [None]
  - LUNG DISORDER [None]
  - PNEUMONIA LEGIONELLA [None]
  - POLYDIPSIA [None]
  - POLYURIA [None]
  - URINE KETONE BODY PRESENT [None]
  - WEIGHT INCREASED [None]
